APPROVED DRUG PRODUCT: BACLOFEN
Active Ingredient: BACLOFEN
Strength: 10MG
Dosage Form/Route: TABLET;ORAL
Application: A077068 | Product #002 | TE Code: AB
Applicant: PH HEALTH LTD
Approved: Aug 30, 2005 | RLD: No | RS: No | Type: RX